FAERS Safety Report 25137650 (Version 1)
Quarter: 2025Q1

REPORT INFORMATION
  Report Type: Spontaneous
  Country: US (occurrence: US)
  Receive Date: 20250329
  Receipt Date: 20250329
  Transmission Date: 20250409
  Serious: No
  Sender: TEVA
  Company Number: US-TEVA-VS-3309931

PATIENT
  Age: 56 Year
  Sex: Female
  Weight: 47.1 kg

DRUGS (1)
  1. AUSTEDO [Suspect]
     Active Substance: DEUTETRABENAZINE
     Indication: Huntington^s disease
     Route: 048
     Dates: start: 2024

REACTIONS (2)
  - Off label use [Unknown]
  - Drug ineffective [Unknown]
